FAERS Safety Report 8771542 (Version 2)
Quarter: 2013Q1

REPORT INFORMATION
  Report Type: Report from Study
  Country: US (occurrence: US)
  Receive Date: 20120906
  Receipt Date: 20130122
  Transmission Date: 20140127
  Serious: Yes (Hospitalization)
  Sender: FDA-Public Use
  Company Number: US-BRISTOL-MYERS SQUIBB COMPANY-16907222

PATIENT
  Age: 58 Year
  Sex: Male
  Weight: 93.2 kg

DRUGS (1)
  1. IPILIMUMAB [Suspect]
     Indication: MALIGNANT MELANOMA
     Dosage: LAST DOSE 14AUG12; 294 MG TOTAL?COURSE 4?10MG/KG-Q3WKSX4DOSE?10MG/KG-Q12WKS 24,36,48,60
     Route: 042
     Dates: start: 20120523

REACTIONS (3)
  - Dehydration [Recovered/Resolved with Sequelae]
  - Dyspnoea [Recovered/Resolved with Sequelae]
  - Pneumonitis [Recovered/Resolved with Sequelae]
